FAERS Safety Report 6103601-8 (Version None)
Quarter: 2009Q1

REPORT INFORMATION
  Report Type: 
  Country: None (occurrence: None)
  Receive Date: 20090305
  Receipt Date: 20090225
  Transmission Date: 20090719
  Serious: Yes (Death)
  Sender: FDA-Public Use
  Company Number: JP-EISAI MEDICAL RESEARCH-E2020-04180-SPO-JP

PATIENT
  Age: 63 Year
  Sex: Female

DRUGS (3)
  1. ARICEPT [Suspect]
     Indication: DEMENTIA ALZHEIMER'S TYPE
     Route: 048
     Dates: start: 20071001, end: 20081001
  2. SERENACE [Suspect]
     Indication: MANIA
     Dosage: UNKNOWN
     Route: 048
     Dates: start: 20080701, end: 20081001
  3. SILECE [Concomitant]
     Indication: INSOMNIA
     Route: 048
     Dates: start: 20060101, end: 20081001

REACTIONS (1)
  - CARDIO-RESPIRATORY ARREST [None]
